FAERS Safety Report 4450387-9 (Version None)
Quarter: 2004Q3

REPORT INFORMATION
  Report Type: 
  Country: None (occurrence: None)
  Receive Date: 20040914
  Receipt Date: 20040907
  Transmission Date: 20050211
  Serious: Yes (Hospitalization, Other)
  Sender: FDA-Public Use
  Company Number: HQWYE839907SEP04

PATIENT
  Age: 85 Year
  Sex: Female

DRUGS (14)
  1. PANTOPRAZOLE SODIUM [Suspect]
     Dosage: 20 MG 1X PER 1 DAY
     Route: 048
     Dates: start: 20040731, end: 20040802
  2. AMLODIPINE BESYLATE [Suspect]
     Indication: ESSENTIAL HYPERTENSION
     Dosage: 5 MG 1X PER 1 DAY
     Route: 048
     Dates: start: 20040731, end: 20040802
  3. CIBACALCINE (CALCITONIN, HUMAN/MANNITOL) [Suspect]
     Dosage: 0.5 MG 1 X PER 1 DAY
     Dates: start: 20040727, end: 20040802
  4. COKENZEN (CANDESARTAN, CILEXETIL/HYDROCHLOROTHIAZIDE) [Suspect]
     Indication: ESSENTIAL HYPERTENSION
     Dosage: 8 MG 1X PER 1 DAY
     Route: 048
     Dates: start: 20040729, end: 20040802
  5. ACETAMINOPHEN [Suspect]
     Route: 048
     Dates: start: 20040731, end: 20040802
  6. FLECAINIDE ACETATE [Suspect]
     Dosage: 50 MG 2X PER 1DAY
     Route: 048
  7. KENZEN (CANDESARTAN CILEXETIL,) [Suspect]
     Indication: ESSENTIAL HYPERTENSION
     Dosage: ORAL
     Route: 048
     Dates: end: 20040729
  8. LEVOTHYROXINE SODIUM [Suspect]
     Indication: HYPERTHYROIDISM
     Dosage: 75 UG 4X PER 1 WK, ORAL
     Route: 048
  9. LOPERAMIDE HCL [Suspect]
     Dosage: ORAL
     Route: 048
     Dates: start: 20040729, end: 20040802
  10. MEDIATENSYL (URAPIDIL, ) [Suspect]
     Dosage: 30 MG 2X PER 1 DAY, ORAL
     Route: 048
     Dates: start: 20040729, end: 20040802
  11. MYOLASTAN (TETRAZEPAM, ) [Concomitant]
     Dosage: 50 MG 1X PER 1 DAY, ORAL
     Route: 048
     Dates: start: 20040731, end: 20040802
  12. PREDNISOLONE [Suspect]
     Dosage: 20 MG 1X PER 1 DAY, ORAL
     Route: 048
     Dates: start: 20040731, end: 20040806
  13. SOTALOL HCL [Suspect]
     Dosage: ^0.5^, ORAL
     Route: 048
     Dates: start: 20040709
  14. CLARITHROMYCIN [Suspect]
     Dosage: 1 DOSAGE FORM 4X PER 1 DAY, ORAL
     Route: 048
     Dates: start: 20040731, end: 20040802

REACTIONS (2)
  - DEPRESSED LEVEL OF CONSCIOUSNESS [None]
  - HYPONATRAEMIA [None]
